FAERS Safety Report 19192055 (Version 1)
Quarter: 2021Q2

REPORT INFORMATION
  Report Type: Spontaneous
  Country: NO (occurrence: NO)
  Receive Date: 20210429
  Receipt Date: 20210429
  Transmission Date: 20210717
  Serious: Yes (Disabling, Other)
  Sender: FDA-Public Use
  Company Number: NO-ABBVIE-21K-122-3881488-00

PATIENT
  Age: 57 Year
  Sex: Female

DRUGS (5)
  1. HUMIRA [Suspect]
     Active Substance: ADALIMUMAB
     Indication: RHEUMATIC DISORDER
     Route: 058
     Dates: start: 2008, end: 202001
  2. HYRIMOZ [Suspect]
     Active Substance: ADALIMUMAB-ADAZ
     Indication: CROHN^S DISEASE
  3. HUMIRA [Suspect]
     Active Substance: ADALIMUMAB
     Indication: CROHN^S DISEASE
  4. HYRIMOZ [Suspect]
     Active Substance: ADALIMUMAB-ADAZ
     Indication: RHEUMATIC DISORDER
     Dosage: 40 MG SOLUTION FOR INJECTION EVERY 14 DAYS
     Route: 058
     Dates: start: 202001
  5. IKERVIS [Concomitant]
     Active Substance: CYCLOSPORINE
     Indication: PRODUCT USED FOR UNKNOWN INDICATION
     Dosage: 1 PR D GN, HAR OGSA FORS KT X 2 EN PERIODE UTEN BEDRING.
     Route: 047

REACTIONS (10)
  - Lacrimation decreased [Unknown]
  - Ocular discomfort [Unknown]
  - Eye discharge [Unknown]
  - Quality of life decreased [Unknown]
  - Product substitution issue [Unknown]
  - Dry eye [Not Recovered/Not Resolved]
  - Eye infection [Not Recovered/Not Resolved]
  - Ocular hyperaemia [Unknown]
  - Pain [Unknown]
  - Conjunctivitis [Unknown]

NARRATIVE: CASE EVENT DATE: 202002
